FAERS Safety Report 8187485-2 (Version None)
Quarter: 2012Q1

REPORT INFORMATION
  Report Type: 
  Country: None (occurrence: None)
  Receive Date: 20120306
  Receipt Date: 20120223
  Transmission Date: 20120608
  Serious: Yes (Other)
  Sender: FDA-Public Use
  Company Number: BE-ROCHE-1043093

PATIENT
  Sex: Male
  Weight: 75 kg

DRUGS (19)
  1. ARAVA [Concomitant]
  2. OMEPRAZOLE [Concomitant]
  3. LORAZEPAM [Concomitant]
  4. MABTHERA [Suspect]
     Dates: start: 20090601
  5. METHOTREXATE [Concomitant]
     Indication: RHEUMATOID ARTHRITIS
  6. DICLOFENAC SODIUM [Concomitant]
  7. CETIRIZINE [Concomitant]
  8. CLONAZEPAM [Concomitant]
  9. FOLIC ACID [Concomitant]
     Indication: RHEUMATOID ARTHRITIS
  10. FER IN SOL [Concomitant]
  11. PRIMPERAN (BELGIUM) [Concomitant]
  12. ACETAMINOPHEN W/ CODEINE [Concomitant]
  13. GLUCOPHAGE [Concomitant]
  14. MABTHERA [Suspect]
     Indication: RHEUMATOID ARTHRITIS
     Route: 042
     Dates: start: 20080601
  15. PREDNISOLONE [Concomitant]
     Indication: RHEUMATOID ARTHRITIS
  16. DEPAKENE [Concomitant]
  17. INDERAL LA [Concomitant]
  18. TRAMADOL HCL [Concomitant]
  19. ACTEMRA [Suspect]
     Indication: RHEUMATOID ARTHRITIS
     Dates: start: 20091015, end: 20100304

REACTIONS (3)
  - ANAEMIA [None]
  - DRUG INEFFECTIVE [None]
  - NORMOCHROMIC NORMOCYTIC ANAEMIA [None]
